FAERS Safety Report 8073345-4 (Version None)
Quarter: 2012Q1

REPORT INFORMATION
  Report Type: 
  Country: None (occurrence: None)
  Receive Date: 20120126
  Receipt Date: 20120117
  Transmission Date: 20120608
  Serious: Yes (Hospitalization, Other)
  Sender: FDA-Public Use
  Company Number: US-ACTELION-A-US2011-49161

PATIENT

DRUGS (2)
  1. TRACLEER [Suspect]
     Indication: PULMONARY ARTERIAL HYPERTENSION
     Dosage: UNK
     Route: 048
     Dates: start: 20090427
  2. COUMADIN [Concomitant]

REACTIONS (6)
  - SHUNT INFECTION [None]
  - GALLBLADDER OPERATION [None]
  - VASCULAR ACCESS COMPLICATION [None]
  - STENT PLACEMENT [None]
  - SYNCOPE [None]
  - DIALYSIS [None]
